FAERS Safety Report 18088149 (Version 4)
Quarter: 2021Q1

REPORT INFORMATION
  Report Type: Spontaneous
  Country: JP (occurrence: JP)
  Receive Date: 20200729
  Receipt Date: 20210312
  Transmission Date: 20210419
  Serious: Yes (Hospitalization, Other)
  Sender: FDA-Public Use
  Company Number: JP-JNJFOC-20200737049

PATIENT
  Age: 79 Year
  Sex: Female
  Weight: 48.8 kg

DRUGS (7)
  1. MEVALOTIN [Concomitant]
     Active Substance: PRAVASTATIN SODIUM
     Route: 048
  2. THYRADIN [Concomitant]
     Active Substance: LEVOTHYROXINE
     Route: 065
  3. TAKELDA [Concomitant]
     Active Substance: ASPIRIN\LANSOPRAZOLE
     Indication: CEREBROVASCULAR ACCIDENT PROPHYLAXIS
     Route: 048
  4. MAGNESIUM OXIDE. [Concomitant]
     Active Substance: MAGNESIUM OXIDE
     Route: 048
  5. CARBOCISTEINE [Concomitant]
     Active Substance: CARBOCYSTEINE
     Route: 048
  6. ONON [Concomitant]
     Active Substance: PRANLUKAST
     Route: 048
  7. TRABECTEDIN [Suspect]
     Active Substance: TRABECTEDIN
     Indication: MYXOFIBROSARCOMA
     Route: 041
     Dates: start: 20200622

REACTIONS (1)
  - Pneumonitis [Recovering/Resolving]

NARRATIVE: CASE EVENT DATE: 20200720
